FAERS Safety Report 6084645-1 (Version None)
Quarter: 2009Q1

REPORT INFORMATION
  Report Type: 
  Country: None (occurrence: None)
  Receive Date: 20090211
  Receipt Date: 20081010
  Transmission Date: 20090719
  Serious: Yes (Hospitalization)
  Sender: FDA-Public Use
  Company Number: US-WYE-H06342708

PATIENT
  Age: 72 Year
  Sex: Female

DRUGS (20)
  1. EFFEXOR [Suspect]
  2. REVLIMID [Suspect]
     Indication: MULTIPLE MYELOMA
     Dosage: 25 MG 1X PER 1 DAY, ORAL ; 25 MG 1X PER 2 DAY, ORAL
     Route: 047
     Dates: start: 20080610, end: 20080630
  3. REVLIMID [Suspect]
     Indication: MULTIPLE MYELOMA
     Dosage: 25 MG 1X PER 1 DAY, ORAL ; 25 MG 1X PER 2 DAY, ORAL
     Route: 047
     Dates: start: 20080826
  4. ZITHROMAX [Suspect]
  5. MEGACE [Concomitant]
  6. LEXAPRO [Concomitant]
  7. MAGNESIUM OXIDE (MAGNESIUM OXIDE) [Concomitant]
  8. EPOETIN ALFA (EPOETIN ALFA) [Concomitant]
  9. PREDNISONE TAB [Concomitant]
  10. ZOMETA [Concomitant]
  11. HYDROCHLOROTHIAZIDE [Concomitant]
  12. POTASSIUM CHLORIDE [Concomitant]
  13. PREVACID [Concomitant]
  14. ALDACTONE [Concomitant]
  15. DECADRON [Concomitant]
  16. HYDRODIURIL [Concomitant]
  17. PRILOSEC [Concomitant]
  18. NYSTATIN [Concomitant]
  19. MIRALAX [Concomitant]
  20. LEXAPRO [Concomitant]

REACTIONS (6)
  - ANOREXIA [None]
  - CONSTIPATION [None]
  - DEHYDRATION [None]
  - NAUSEA [None]
  - TACHYCARDIA [None]
  - VOMITING [None]
